FAERS Safety Report 16530458 (Version 2)
Quarter: 2019Q3

REPORT INFORMATION
  Report Type: Spontaneous
  Country: US (occurrence: US)
  Receive Date: 20190704
  Receipt Date: 20190926
  Transmission Date: 20191004
  Serious: Yes (Hospitalization, Other)
  Sender: FDA-Public Use
  Company Number: US-009507513-1709USA006773

PATIENT
  Sex: Male
  Weight: 83.45 kg

DRUGS (12)
  1. ASPIRIN. [Concomitant]
     Active Substance: ASPIRIN
     Indication: ISCHAEMIC HEART DISEASE PROPHYLAXIS
     Dosage: 81 MILLIGRAM, QD
     Route: 048
     Dates: start: 20080215
  2. METFORMIN HYDROCHLORIDE. [Concomitant]
     Active Substance: METFORMIN HYDROCHLORIDE
     Dosage: 1 DOSAGE FORM, BID, WITH MEALS
     Route: 048
     Dates: start: 20080327
  3. LOSARTAN. [Concomitant]
     Active Substance: LOSARTAN
     Indication: HYPERTENSION
     Dosage: 25 MILLIGRAM
     Dates: start: 2008
  4. ATORVASTATIN [Concomitant]
     Active Substance: ATORVASTATIN
     Indication: DIABETES MELLITUS
     Dosage: 10 MILLIGRAM
     Dates: start: 2008
  5. CLOPIDOGREL [Concomitant]
     Active Substance: CLOPIDOGREL BISULFATE
     Indication: ROUTINE HEALTH MAINTENANCE
     Dosage: 75 MILLIGRAM
     Dates: start: 2008
  6. KEPPRA [Concomitant]
     Active Substance: LEVETIRACETAM
  7. STERILE DILUENT (WATER) [Suspect]
     Active Substance: WATER
     Indication: PROPHYLAXIS
     Dosage: UNK
     Dates: start: 20130128
  8. METFORMIN [Concomitant]
     Active Substance: METFORMIN HYDROCHLORIDE
     Indication: DIABETES MELLITUS
     Dosage: 500 MILLIGRAM
     Dates: start: 2008
  9. METOPROLOL. [Concomitant]
     Active Substance: METOPROLOL
     Indication: HYPERTENSION
     Dosage: 50 MILLIGRAM
     Dates: start: 2008
  10. ZOSTAVAX [Suspect]
     Active Substance: VARICELLA-ZOSTER VIRUS STRAIN OKA/MERCK LIVE ANTIGEN
     Indication: PROPHYLAXIS
     Route: 065
     Dates: start: 20130128
  11. METOPROLOL TARTRATE. [Concomitant]
     Active Substance: METOPROLOL TARTRATE
     Dosage: 50 MILLIGRAM, Q12H
     Route: 048
     Dates: start: 20080327
  12. VITAMINS (UNSPECIFIED) [Concomitant]
     Active Substance: VITAMINS
     Indication: PRODUCT USED FOR UNKNOWN INDICATION
     Dosage: TAKE ONE TABLET BY MOUTH DAILY
     Route: 048
     Dates: start: 20080327

REACTIONS (21)
  - Anxiety [Unknown]
  - Hypothyroidism [Unknown]
  - Clumsiness [Unknown]
  - Subdural haematoma [Recovered/Resolved]
  - Visual impairment [Recovered/Resolved]
  - Ischaemic cardiomyopathy [Unknown]
  - Depressed mood [Unknown]
  - Acute coronary syndrome [Unknown]
  - Vaccination failure [Not Recovered/Not Resolved]
  - Dizziness [Unknown]
  - Diabetic neuropathy [Unknown]
  - Balance disorder [Unknown]
  - Subarachnoid haemorrhage [Recovered/Resolved]
  - Post herpetic neuralgia [Recovering/Resolving]
  - Hypoaesthesia [Recovered/Resolved]
  - Arthritis [Unknown]
  - Herpes zoster [Recovering/Resolving]
  - Concussion [Recovering/Resolving]
  - Cataract [Unknown]
  - Skin hypopigmentation [Unknown]
  - Feeling abnormal [Recovered/Resolved]

NARRATIVE: CASE EVENT DATE: 201303
